FAERS Safety Report 23357157 (Version 6)
Quarter: 2024Q1

REPORT INFORMATION
  Report Type: Spontaneous
  Country: GB (occurrence: GB)
  Receive Date: 20240102
  Receipt Date: 20240227
  Transmission Date: 20240410
  Serious: Yes (Other)
  Sender: FDA-Public Use
  Company Number: GB-PFIZER INC-PV202300206874

PATIENT
  Age: 21 Year
  Sex: Male

DRUGS (1)
  1. GENOTROPIN [Suspect]
     Active Substance: SOMATROPIN
     Indication: Growth hormone deficiency
     Dosage: 0.8 MG
     Route: 058

REACTIONS (8)
  - Device dispensing error [Unknown]
  - Device delivery system issue [Unknown]
  - Accidental overdose [Unknown]
  - Intracranial aneurysm [Unknown]
  - Headache [Unknown]
  - Insomnia [Unknown]
  - Drug dose omission by device [Unknown]
  - Malaise [Unknown]
